FAERS Safety Report 6700778-8 (Version None)
Quarter: 2010Q2

REPORT INFORMATION
  Report Type: 
  Country: None (occurrence: None)
  Receive Date: 20100428
  Receipt Date: 20100412
  Transmission Date: 20101027
  Serious: Yes (Other)
  Sender: FDA-Public Use
  Company Number: US-BAXTER-2010BH002877

PATIENT
  Age: 69 Year
  Sex: Male

DRUGS (2)
  1. DIANEAL [Suspect]
     Indication: PERITONEAL DIALYSIS
     Route: 033
     Dates: start: 20100210, end: 20100401
  2. DIANEAL [Suspect]
     Route: 033
     Dates: start: 20100210, end: 20100401

REACTIONS (2)
  - PERITONITIS [None]
  - PERITONITIS BACTERIAL [None]
